FAERS Safety Report 5431936-0 (Version None)
Quarter: 2007Q3

REPORT INFORMATION
  Report Type: 
  Country: None (occurrence: None)
  Receive Date: 20070830
  Receipt Date: 20070828
  Transmission Date: 20080115
  Serious: Yes (Life-Threatening, Other)
  Sender: FDA-Public Use
  Company Number: US-PFIZER INC-2005028079

PATIENT
  Sex: Male
  Weight: 77.1 kg

DRUGS (9)
  1. BEXTRA [Suspect]
     Indication: SPONDYLITIS
     Route: 048
  2. LIPITOR [Suspect]
     Indication: BLOOD CHOLESTEROL INCREASED
     Dosage: TEXT:UNKNOWN-FREQ:UNKNOWN
     Route: 048
  3. CELEBREX [Suspect]
  4. ARISTOSPAN [Suspect]
  5. KLONOPIN [Concomitant]
     Route: 048
  6. LEXAPRO [Concomitant]
     Route: 048
  7. LAMICTAL [Concomitant]
     Route: 048
  8. RITALIN [Concomitant]
     Route: 048
  9. ZETIA [Concomitant]
     Route: 048

REACTIONS (9)
  - ASTHENIA [None]
  - BLOOD CREATINE PHOSPHOKINASE INCREASED [None]
  - DRUG INEFFECTIVE [None]
  - FALL [None]
  - HEADACHE [None]
  - MYALGIA [None]
  - NECK PAIN [None]
  - PSYCHOTIC DISORDER [None]
  - SUICIDE ATTEMPT [None]
